FAERS Safety Report 4965755-6 (Version None)
Quarter: 2006Q2

REPORT INFORMATION
  Report Type: 
  Country: None (occurrence: None)
  Receive Date: 20060405
  Receipt Date: 20060405
  Transmission Date: 20061013
  Serious: Yes (Congenital Anomaly)
  Sender: FDA-Public Use
  Company Number: None

PATIENT
  Age: 1 Day
  Sex: Male
  Weight: 4.536 kg

DRUGS (2)
  1. SINGULAIR [Suspect]
     Indication: ASTHMA
     Dosage: 10 MG   DAILY  PO
     Route: 048
     Dates: start: 20050101, end: 20051220
  2. KETEK [Suspect]
     Indication: BRONCHITIS
     Dosage: 800 MG  DAILY   PO
     Route: 048
     Dates: start: 20050312, end: 20050317

REACTIONS (1)
  - MESOMELIA [None]
